FAERS Safety Report 9195918 (Version 2)
Quarter: 2013Q2

REPORT INFORMATION
  Report Type: Spontaneous
  Country: US (occurrence: US)
  Receive Date: 20130328
  Receipt Date: 20130403
  Transmission Date: 20140414
  Serious: Yes (Death, Hospitalization, Other)
  Sender: FDA-Public Use
  Company Number: US-BAYER-2013-035957

PATIENT
  Age: 78 Year
  Sex: Female

DRUGS (25)
  1. XARELTO [Suspect]
     Indication: PULMONARY EMBOLISM
     Dosage: 15 MG, BID
     Route: 048
     Dates: start: 20130208, end: 20130209
  2. XARELTO [Interacting]
     Indication: EMBOLISM VENOUS
  3. ACETYLSALICYLIC ACID({=100 MG) [Interacting]
     Indication: PULMONARY EMBOLISM
     Dosage: 81 MG, QD
     Route: 065
  4. PLAVIX [Interacting]
     Dosage: 75 MG, QD
     Route: 065
  5. ZOCOR [Concomitant]
     Dosage: 10 MG, UNK
     Route: 048
  6. RANITIDINE [Concomitant]
     Route: 048
  7. LANTUS [Concomitant]
     Route: 065
  8. VICODIN [Concomitant]
     Route: 048
  9. BIOTIN [Concomitant]
     Dosage: 5 MG, UNK
     Route: 048
  10. CALCIUM CITRATE W/VITAMIN D NOS [Concomitant]
     Route: 048
  11. CARDIZEM CD [Concomitant]
     Dosage: 240 MG, UNK
     Route: 048
  12. COLACE [Concomitant]
     Dosage: 100 MG, UNK
     Route: 048
  13. FLONASE [Concomitant]
     Route: 045
  14. ADVAIR [Concomitant]
     Route: 055
  15. LASIX [Concomitant]
     Dosage: 20 MG, UNK
     Route: 048
  16. HUMULIN R [Concomitant]
     Route: 065
  17. ISOSORBIDE MONONITRATE [Concomitant]
     Dosage: 60 MG, BID
     Route: 048
  18. ACIDOPHILUS [Concomitant]
     Dosage: 1 MG, UNK
     Route: 048
  19. XOPENEX [Concomitant]
     Dosage: 45 ?G, UNK
     Route: 055
  20. SYNTHROID [Concomitant]
     Dosage: 100 ?G, UNK
     Route: 048
  21. CLARITIN [Concomitant]
     Dosage: 10 MG, UNK
     Route: 048
  22. COZAAR [Concomitant]
     Dosage: 50 MG, UNK
     Route: 048
  23. MULTIVITAMINS [Concomitant]
     Route: 048
  24. NITROSTAT [Concomitant]
     Indication: CHEST PAIN
     Dosage: UNK
     Route: 060
     Dates: start: 20130114, end: 201302
  25. SPIRIVA [Concomitant]
     Dosage: 18 ?G, UNK
     Route: 055

REACTIONS (9)
  - Death [Fatal]
  - Eye haemorrhage [Unknown]
  - Haemorrhage [Unknown]
  - Haemoglobin decreased [None]
  - Haematocrit decreased [None]
  - Platelet count decreased [None]
  - Activated partial thromboplastin time prolonged [None]
  - Protein C decreased [None]
  - Blood albumin decreased [None]
